FAERS Safety Report 11812462 (Version 1)
Quarter: 2015Q4

REPORT INFORMATION
  Report Type: Spontaneous
  Country: US (occurrence: US)
  Receive Date: 20151208
  Receipt Date: 20151208
  Transmission Date: 20160305
  Serious: No
  Sender: FDA-Public Use
  Company Number: US-MAYNE PHARMA-2015MYN000005

PATIENT
  Sex: Female

DRUGS (1)
  1. OXYCODONE AND ACETAMINOPHEN [Suspect]
     Active Substance: ACETAMINOPHEN\OXYCODONE\OXYCODONE HYDROCHLORIDE
     Indication: PAIN
     Dosage: 1 DF, Q8H
     Dates: start: 20150320, end: 201505

REACTIONS (3)
  - Chills [Recovered/Resolved]
  - Drug ineffective [Recovered/Resolved]
  - Nausea [Recovered/Resolved]
